FAERS Safety Report 21792432 (Version 4)
Quarter: 2023Q1

REPORT INFORMATION
  Report Type: Report from Study
  Country: US (occurrence: US)
  Receive Date: 20221229
  Receipt Date: 20230317
  Transmission Date: 20230418
  Serious: No
  Sender: FDA-Public Use
  Company Number: US-002147023-NVSC2022US300332

PATIENT
  Age: 38 Year
  Sex: Female

DRUGS (2)
  1. ILARIS [Suspect]
     Active Substance: CANAKINUMAB
     Indication: Product used for unknown indication
     Dosage: 195 MG, Q4W
     Route: 058
     Dates: start: 20220705
  2. ILARIS [Suspect]
     Active Substance: CANAKINUMAB
     Dosage: UNK, Q4W (1.3 ML EQUIVALENT 195 MG)
     Route: 065
     Dates: start: 20221220

REACTIONS (2)
  - Symptom recurrence [Unknown]
  - Injection site vesicles [Unknown]

NARRATIVE: CASE EVENT DATE: 20230314
